FAERS Safety Report 6810220-4 (Version None)
Quarter: 2010Q2

REPORT INFORMATION
  Report Type: 
  Country: None (occurrence: None)
  Receive Date: 20100630
  Receipt Date: 20100607
  Transmission Date: 20101027
  Serious: Yes (Other)
  Sender: FDA-Public Use
  Company Number: JP-PFIZER INC-2010056513

PATIENT
  Age: 68 Year
  Sex: Female

DRUGS (1)
  1. SEIBULE [Suspect]
     Indication: DIABETES MELLITUS
     Dosage: 112.5 MG, UNK
     Route: 048
     Dates: start: 20091128, end: 20100330

REACTIONS (1)
  - HEPATIC FUNCTION ABNORMAL [None]
